FAERS Safety Report 5363422-0 (Version None)
Quarter: 2007Q2

REPORT INFORMATION
  Report Type: 
  Country: None (occurrence: None)
  Receive Date: 20070620
  Receipt Date: 20070607
  Transmission Date: 20071010
  Serious: Yes (Hospitalization)
  Sender: FDA-Public Use
  Company Number: US-PFIZER INC-2007047201

PATIENT
  Age: 72 Year
  Sex: Male

DRUGS (2)
  1. LINEZOLID [Suspect]
     Indication: PNEUMONIA
  2. METRONIDAZOLE TABLET [Suspect]

REACTIONS (1)
  - OPTIC NEUROPATHY [None]
